FAERS Safety Report 20000131 (Version 2)
Quarter: 2021Q4

REPORT INFORMATION
  Report Type: Report from Study
  Country: None (occurrence: CA)
  Receive Date: 20211027
  Receipt Date: 20211028
  Transmission Date: 20220303
  Serious: Yes (Other)
  Sender: FDA-Public Use
  Company Number: CA-ABBVIE-21K-028-4133581-00

PATIENT
  Age: 40 Year
  Sex: Male

DRUGS (4)
  1. HUMIRA [Suspect]
     Active Substance: ADALIMUMAB
     Indication: Crohn^s disease
     Route: 058
     Dates: start: 20090811
  2. HUMIRA [Suspect]
     Active Substance: ADALIMUMAB
     Dosage: EVERY 3-4 WEEKS
     Route: 058
     Dates: end: 2021
  3. HUMIRA [Suspect]
     Active Substance: ADALIMUMAB
     Dosage: EVERY 3-4 WEEKS
     Route: 058
     Dates: start: 2021
  4. MODERNA COVID-19 VACCINE [Suspect]
     Active Substance: CX-024414
     Indication: COVID-19 prophylaxis
     Route: 030
     Dates: start: 2021, end: 2021

REACTIONS (13)
  - Total lung capacity decreased [Unknown]
  - Lung disorder [Unknown]
  - Pulmonary resection [Unknown]
  - Illness [Unknown]
  - Memory impairment [Unknown]
  - Haemoptysis [Unknown]
  - Stress [Unknown]
  - Dyspepsia [Unknown]
  - Injury [Unknown]
  - Bronchospasm [Unknown]
  - Gastrointestinal infection [Unknown]
  - Diarrhoea [Unknown]
  - Impaired healing [Unknown]

NARRATIVE: CASE EVENT DATE: 20210701
